FAERS Safety Report 15185591 (Version 1)
Quarter: 2018Q3

REPORT INFORMATION
  Report Type: Spontaneous
  Country: None (occurrence: US)
  Receive Date: 20180723
  Receipt Date: 20180723
  Transmission Date: 20181010
  Serious: Yes (Other)
  Sender: FDA-Public Use
  Company Number: US-WALMART-2052612

PATIENT
  Sex: Female

DRUGS (1)
  1. ACETAMINOPHEN AND DIPHENHYDRAMINE HYDROCHLORIDE [Suspect]
     Active Substance: ACETAMINOPHEN\DIPHENHYDRAMINE HYDROCHLORIDE
     Indication: SLEEP DISORDER THERAPY
     Route: 048
     Dates: start: 20180711, end: 20180711

REACTIONS (3)
  - Pruritus [Recovering/Resolving]
  - Urticaria [Recovered/Resolved]
  - Blister [Recovered/Resolved]
